FAERS Safety Report 12664276 (Version 1)
Quarter: 2016Q3

REPORT INFORMATION
  Report Type: Spontaneous
  Country: US (occurrence: US)
  Receive Date: 20160818
  Receipt Date: 20160818
  Transmission Date: 20161109
  Serious: No
  Sender: FDA-Public Use
  Company Number: US-TORRENT-00001241

PATIENT
  Sex: Female

DRUGS (1)
  1. CARBAMAZEPINE TABLET [Suspect]
     Active Substance: CARBAMAZEPINE
     Indication: TRIGEMINAL NEURALGIA

REACTIONS (4)
  - Thinking abnormal [Unknown]
  - Drug ineffective [Unknown]
  - Dysphemia [Unknown]
  - Product quality issue [Unknown]
